FAERS Safety Report 9944312 (Version 1)
Quarter: 2014Q1

REPORT INFORMATION
  Report Type: Report from Study
  Country: US (occurrence: US)
  Receive Date: 20140303
  Receipt Date: 20140303
  Transmission Date: 20141002
  Serious: No
  Sender: FDA-Public Use
  Company Number: US-ABBVIE-13P-163-1053748-00

PATIENT
  Sex: Female
  Weight: 113.5 kg

DRUGS (18)
  1. HUMIRA [Suspect]
     Indication: RHEUMATOID ARTHRITIS
     Dates: start: 201208, end: 201301
  2. METHOTREXATE [Concomitant]
     Indication: RHEUMATOID ARTHRITIS
  3. FOLIC ACID [Concomitant]
     Indication: VITAMIN SUPPLEMENTATION
  4. PLACQUENIL [Concomitant]
     Indication: RHEUMATOID ARTHRITIS
  5. PREDNISONE [Concomitant]
     Indication: HYPERTENSION
  6. VASOTEC [Concomitant]
     Indication: HYPERTENSION
  7. PREVACID [Concomitant]
     Indication: GASTROOESOPHAGEAL REFLUX DISEASE
  8. DUPROPION HCL [Concomitant]
     Indication: DEPRESSION
  9. FISH OIL [Concomitant]
     Indication: VITAMIN SUPPLEMENTATION
  10. MVI [Concomitant]
     Indication: VITAMIN SUPPLEMENTATION
  11. VITAMIN C [Concomitant]
     Indication: VITAMIN SUPPLEMENTATION
  12. CALCIUM [Concomitant]
     Indication: MINERAL SUPPLEMENTATION
  13. VITAMIN B12 [Concomitant]
     Indication: VITAMIN SUPPLEMENTATION
  14. VITAMIN B6 [Concomitant]
     Indication: VITAMIN SUPPLEMENTATION
  15. VITAMIN D3 [Concomitant]
     Indication: VITAMIN SUPPLEMENTATION
  16. ASPIRIN [Concomitant]
     Indication: THROMBOSIS PROPHYLAXIS
  17. TRAZADONE [Concomitant]
     Indication: INSOMNIA
  18. DIAZIDE [Concomitant]
     Indication: HYPERTENSION

REACTIONS (9)
  - Device malfunction [Unknown]
  - Injection site extravasation [Unknown]
  - Rheumatoid arthritis [Recovering/Resolving]
  - Local swelling [Recovering/Resolving]
  - Pain in extremity [Recovering/Resolving]
  - Injection site pain [Recovered/Resolved]
  - Swelling [Not Recovered/Not Resolved]
  - Pain [Not Recovered/Not Resolved]
  - Injection site bruising [Unknown]
